FAERS Safety Report 9769957 (Version 1)
Quarter: 2013Q4

REPORT INFORMATION
  Report Type: Spontaneous
  Country: US (occurrence: US)
  Receive Date: 20131218
  Receipt Date: 20131218
  Transmission Date: 20140711
  Serious: No
  Sender: FDA-Public Use
  Company Number: US-VERTEX PHARMACEUTICALS INC-AE-2011-001027

PATIENT
  Age: 58 Year
  Sex: Female
  Weight: 83.18 kg

DRUGS (6)
  1. INCIVEK [Suspect]
     Indication: HEPATITIS C
     Route: 048
     Dates: start: 20110721
  2. PEGASYS [Concomitant]
     Indication: HEPATITIS C
     Route: 058
     Dates: start: 20110721
  3. RIBAVIRIN [Concomitant]
     Indication: HEPATITIS C
     Dates: start: 20110721
  4. LISINOPRIL [Concomitant]
  5. CELEBREX [Concomitant]
  6. LYRICA [Concomitant]

REACTIONS (6)
  - Dizziness [Not Recovered/Not Resolved]
  - Temperature intolerance [Not Recovered/Not Resolved]
  - Activities of daily living impaired [Not Recovered/Not Resolved]
  - Dysstasia [Not Recovered/Not Resolved]
  - Fatigue [Not Recovered/Not Resolved]
  - Asthenia [Not Recovered/Not Resolved]
